FAERS Safety Report 6724767-2 (Version None)
Quarter: 2010Q2

REPORT INFORMATION
  Report Type: 
  Country: None (occurrence: None)
  Receive Date: 20100511
  Receipt Date: 20100429
  Transmission Date: 20101027
  Serious: Yes (Hospitalization)
  Sender: FDA-Public Use
  Company Number: 2009SP026861

PATIENT
  Age: 24 Year
  Sex: Female
  Weight: 115.6672 kg

DRUGS (2)
  1. NUVARING [Suspect]
     Indication: CONTRACEPTION
     Dosage: QM;VAG
     Route: 067
     Dates: start: 20060801, end: 20061125
  2. PREVACID [Concomitant]

REACTIONS (8)
  - CERVICAL DYSPLASIA [None]
  - DEEP VEIN THROMBOSIS [None]
  - EPISTAXIS [None]
  - HEADACHE [None]
  - PLATELET COUNT DECREASED [None]
  - PULMONARY EMBOLISM [None]
  - UNEVALUABLE EVENT [None]
  - VAGINAL HAEMORRHAGE [None]
